FAERS Safety Report 8019685-6 (Version None)
Quarter: 2012Q1

REPORT INFORMATION
  Report Type: 
  Country: None (occurrence: None)
  Receive Date: 20120103
  Receipt Date: 20111227
  Transmission Date: 20120608
  Serious: Yes (Hospitalization)
  Sender: FDA-Public Use
  Company Number: US-GLAXOSMITHKLINE-A0937377A

PATIENT
  Sex: Male
  Weight: 172.5 kg

DRUGS (3)
  1. ELTROMBOPAG [Suspect]
     Indication: NEOPLASM MALIGNANT
     Dosage: 300MG PER DAY
     Route: 048
     Dates: start: 20110620, end: 20110713
  2. TACROLIMUS [Concomitant]
  3. ZOSYN [Concomitant]

REACTIONS (4)
  - WEIGHT INCREASED [None]
  - THROMBOCYTOPENIA [None]
  - RENAL FAILURE ACUTE [None]
  - CYTOMEGALOVIRUS INFECTION [None]
